FAERS Safety Report 6010988-3 (Version None)
Quarter: 2008Q4

REPORT INFORMATION
  Report Type: 
  Country: None (occurrence: None)
  Receive Date: 20081218
  Receipt Date: 20081216
  Transmission Date: 20090506
  Serious: Yes (Other)
  Sender: FDA-Public Use
  Company Number: B0550687A

PATIENT
  Sex: Female

DRUGS (9)
  1. LAMOTRIGINE [Suspect]
     Indication: AFFECTIVE DISORDER
     Dosage: 50MG PER DAY
     Route: 048
     Dates: start: 20081105, end: 20081202
  2. SIMVASTATIN [Concomitant]
  3. OMEPRAZOLE [Concomitant]
  4. CHLORPROMAZINE [Concomitant]
  5. HALOPERIDOL [Concomitant]
  6. NITRAZEPAM [Concomitant]
  7. SENNA [Concomitant]
  8. LACTULOSE [Concomitant]
  9. ALBUTEROL SULFATE [Concomitant]

REACTIONS (2)
  - OEDEMA PERIPHERAL [None]
  - SWELLING FACE [None]
